FAERS Safety Report 11485519 (Version 1)
Quarter: 2015Q3

REPORT INFORMATION
  Report Type: Spontaneous
  Country: CA (occurrence: None)
  Receive Date: 20150909
  Receipt Date: 20150909
  Transmission Date: 20151125
  Serious: Yes (Other)
  Sender: FDA-Public Use
  Company Number: None

PATIENT
  Age: 26 Year
  Sex: Female
  Weight: 52.16 kg

DRUGS (2)
  1. IBUPROFEN. [Concomitant]
     Active Substance: IBUPROFEN
  2. SINGULAIR [Suspect]
     Active Substance: MONTELUKAST SODIUM
     Indication: RHINITIS
     Dosage: 1 PILL ONCE A DAY 10 MG ONCE DAILY TAKEN BY MOUTH
     Route: 048
     Dates: start: 20150820, end: 20150904

REACTIONS (12)
  - Stress [None]
  - Abnormal dreams [None]
  - Chills [None]
  - Hyperhidrosis [None]
  - Abnormal behaviour [None]
  - Insomnia [None]
  - Pruritus [None]
  - Mood altered [None]
  - Depressed mood [None]
  - Sinus headache [None]
  - Anxiety [None]
  - Emotional disorder [None]

NARRATIVE: CASE EVENT DATE: 20150904
